FAERS Safety Report 21197896 (Version 1)
Quarter: 2022Q3

REPORT INFORMATION
  Report Type: Spontaneous
  Country: US (occurrence: US)
  Receive Date: 20220810
  Receipt Date: 20220810
  Transmission Date: 20221027
  Serious: Yes (Other)
  Sender: FDA-Public Use
  Company Number: US-JNJFOC-20220802071

PATIENT
  Age: 1 Decade
  Sex: Male

DRUGS (13)
  1. RISPERIDONE [Suspect]
     Active Substance: RISPERIDONE
     Indication: Attention deficit hyperactivity disorder
     Route: 048
  2. RISPERIDONE [Suspect]
     Active Substance: RISPERIDONE
     Indication: Oppositional defiant disorder
     Dosage: 01 MG EVERY MORNING AND 0.5 MG AT BEDTIME
     Route: 048
     Dates: start: 20150803
  3. RISPERIDONE [Suspect]
     Active Substance: RISPERIDONE
     Indication: Attention deficit hyperactivity disorder
     Route: 048
  4. RISPERIDONE [Suspect]
     Active Substance: RISPERIDONE
     Indication: Oppositional defiant disorder
     Dosage: 01 MG EVERY MORNING AND 0.5 MG AT BEDTIME
     Route: 048
     Dates: start: 20150616
  5. RISPERIDONE [Suspect]
     Active Substance: RISPERIDONE
     Dosage: 01 MG EVERY MORNING AND 0.25 MG AT BEDTIME
     Route: 048
     Dates: start: 2015
  6. RISPERIDONE [Suspect]
     Active Substance: RISPERIDONE
     Route: 048
     Dates: start: 20151223
  7. RISPERIDONE [Suspect]
     Active Substance: RISPERIDONE
     Dosage: 0.25 MG PER ORAL EVERY MORNING AND 0.5 MG AT BEDTIME
     Route: 048
     Dates: start: 20160119
  8. RISPERIDONE [Suspect]
     Active Substance: RISPERIDONE
     Route: 048
     Dates: start: 20160518
  9. RISPERIDONE [Suspect]
     Active Substance: RISPERIDONE
     Route: 048
     Dates: start: 2016
  10. RISPERIDONE [Suspect]
     Active Substance: RISPERIDONE
     Route: 048
     Dates: start: 20160802
  11. RISPERIDONE [Suspect]
     Active Substance: RISPERIDONE
     Dosage: AT NIGHT
     Route: 048
     Dates: start: 20160913
  12. RISPERIDONE [Suspect]
     Active Substance: RISPERIDONE
     Dosage: 01 MG EVERY MORNING AND 0.5 MG DAILY AT BEDTIME
     Route: 048
     Dates: start: 20161027
  13. RISPERIDONE [Suspect]
     Active Substance: RISPERIDONE
     Route: 048
     Dates: start: 20161223

REACTIONS (5)
  - Homicidal ideation [Unknown]
  - Weight increased [Unknown]
  - Blood prolactin increased [Unknown]
  - Gynaecomastia [Unknown]
  - Off label use [Unknown]

NARRATIVE: CASE EVENT DATE: 20150101
